FAERS Safety Report 14822033 (Version 6)
Quarter: 2018Q4

REPORT INFORMATION
  Report Type: Spontaneous
  Country: IT (occurrence: IT)
  Receive Date: 20180427
  Receipt Date: 20181005
  Transmission Date: 20190204
  Serious: Yes (Hospitalization, Other)
  Sender: FDA-Public Use
  Company Number: IT-AUROBINDO-AUR-APL-2018-019952

PATIENT
  Age: 70 Year
  Sex: Female

DRUGS (5)
  1. ALENDRONIC ACID TABLETS [Suspect]
     Active Substance: ALENDRONIC ACID
     Indication: OSTEOPOROSIS
     Dosage: 70 MILLIGRAM, EVERY WEEK
     Route: 048
     Dates: start: 2010, end: 201502
  2. COTAREG [Concomitant]
     Active Substance: HYDROCHLOROTHIAZIDE\VALSARTAN
     Indication: HYPERTENSION
     Dosage: UNK
     Route: 065
  3. SEQUACOR [Concomitant]
     Active Substance: BISOPROLOL
     Indication: CARDIAC FAILURE
     Dosage: UNK
     Route: 065
  4. LAROXYL [Concomitant]
     Active Substance: AMITRIPTYLINE HYDROCHLORIDE
     Indication: ANTIDEPRESSANT THERAPY
     Dosage: UNK
     Route: 065
  5. LYRICA [Concomitant]
     Active Substance: PREGABALIN
     Indication: PAIN
     Dosage: UNK
     Route: 065

REACTIONS (16)
  - Mouth swelling [Recovered/Resolved]
  - Tooth loss [Recovered/Resolved]
  - Excessive granulation tissue [Recovered/Resolved]
  - Bone erosion [Recovered/Resolved]
  - Bone disorder [Recovered/Resolved]
  - Oral mucosa erosion [Recovered/Resolved]
  - Abscess oral [Recovered/Resolved]
  - Oral cavity fistula [Recovered/Resolved]
  - Osteonecrosis of jaw [Recovered/Resolved]
  - Cyst [Recovered/Resolved]
  - Procedural pain [Recovered/Resolved]
  - Bone density increased [Recovered/Resolved]
  - X-ray abnormal [Recovered/Resolved]
  - Impaired healing [Recovered/Resolved]
  - Osteonecrosis [Recovered/Resolved]
  - Osteolysis [Recovered/Resolved]

NARRATIVE: CASE EVENT DATE: 201311
